FAERS Safety Report 19089650 (Version 1)
Quarter: 2021Q2

REPORT INFORMATION
  Report Type: Spontaneous
  Country: US (occurrence: US)
  Receive Date: 20210403
  Receipt Date: 20210403
  Transmission Date: 20210717
  Serious: Yes (Other)
  Sender: FDA-Public Use
  Company Number: NVSC2021US065438

PATIENT
  Age: 80 Year
  Sex: Male

DRUGS (1)
  1. BROLUCIZUMAB. [Suspect]
     Active Substance: BROLUCIZUMAB
     Indication: NEOVASCULAR AGE-RELATED MACULAR DEGENERATION
     Dosage: 6 MG
     Route: 065

REACTIONS (4)
  - Vitreous floaters [Recovered/Resolved]
  - Visual acuity reduced [Recovering/Resolving]
  - Blindness [Unknown]
  - Ocular hyperaemia [Recovered/Resolved]
